FAERS Safety Report 15542698 (Version 6)
Quarter: 2018Q4

REPORT INFORMATION
  Report Type: Report from Study
  Country: CA (occurrence: CA)
  Receive Date: 20181023
  Receipt Date: 20181218
  Transmission Date: 20190205
  Serious: Yes (Other)
  Sender: FDA-Public Use
  Company Number: CA-SA-2018SA168760

PATIENT
  Age: 25 Year
  Sex: Female

DRUGS (10)
  1. ACYCLOVIR ALPHARMA [ACICLOVIR SODIUM] [Concomitant]
     Active Substance: ACYCLOVIR
     Indication: PREMEDICATION
     Dosage: 200 MG, BID
     Route: 048
     Dates: start: 20180618
  2. ALEMTUZUMAB [Suspect]
     Active Substance: ALEMTUZUMAB
     Indication: RELAPSING-REMITTING MULTIPLE SCLEROSIS
     Dosage: 12 MG, QD
     Route: 041
     Dates: start: 20180618, end: 20180620
  3. TYLENOL [Concomitant]
     Active Substance: ACETAMINOPHEN
     Indication: PREMEDICATION
     Dosage: 975 MG, PRN
     Route: 048
     Dates: start: 20180618
  4. TRI-CYCLEN [Concomitant]
     Active Substance: ETHINYL ESTRADIOL\NORGESTIMATE
     Indication: ORAL CONTRACEPTION
     Dosage: UNK
     Route: 048
  5. VESICARE [Concomitant]
     Active Substance: SOLIFENACIN SUCCINATE
     Indication: BLADDER DISORDER
     Dosage: UNK
     Route: 048
  6. CIMETIDINE [Concomitant]
     Active Substance: CIMETIDINE
     Indication: PREMEDICATION
     Dosage: 200 MG
     Route: 048
     Dates: start: 20180618, end: 20180620
  7. VITAMIN D [COLECALCIFEROL] [Concomitant]
     Indication: SUPPLEMENTATION THERAPY
     Dosage: UNK
     Route: 048
  8. METHYLPREDNISOLONE. [Suspect]
     Active Substance: METHYLPREDNISOLONE
     Indication: PREMEDICATION
     Dosage: 1 G
     Route: 042
     Dates: start: 20180618, end: 20180620
  9. BENADRYL [Concomitant]
     Active Substance: DIPHENHYDRAMINE HYDROCHLORIDE
     Indication: PREMEDICATION
     Dosage: 50 MG, PRN
     Route: 048
     Dates: start: 20180618
  10. GRAVOL [Concomitant]
     Active Substance: DIMENHYDRINATE
     Indication: PREMEDICATION
     Dosage: UNK UNK, PRN
     Route: 048
     Dates: start: 20180618

REACTIONS (23)
  - Hypertension [Recovered/Resolved]
  - Tachycardia [Recovered/Resolved]
  - Chromaturia [Unknown]
  - Sluggishness [Recovered/Resolved]
  - Urine leukocyte esterase positive [Not Recovered/Not Resolved]
  - Pruritus generalised [Recovered/Resolved]
  - Anti-thyroid antibody positive [Unknown]
  - Thyroid stimulating immunoglobulin [Unknown]
  - Lymphocyte count decreased [Not Recovered/Not Resolved]
  - Fatigue [Recovering/Resolving]
  - Chest discomfort [Recovered/Resolved]
  - Bradycardia [Recovered/Resolved]
  - Injection site pruritus [Recovered/Resolved]
  - Malaise [Unknown]
  - Feeling hot [Recovered/Resolved]
  - Flushing [Recovered/Resolved]
  - Blood thyroid stimulating hormone increased [Recovered/Resolved]
  - Laryngitis [Recovered/Resolved]
  - Cold sweat [Recovered/Resolved]
  - Urine abnormality [Not Recovered/Not Resolved]
  - Blood urine present [Recovered/Resolved]
  - Headache [Recovered/Resolved]
  - Bronchitis [Recovered/Resolved]

NARRATIVE: CASE EVENT DATE: 20180618
